FAERS Safety Report 12064186 (Version 1)
Quarter: 2016Q1

REPORT INFORMATION
  Report Type: Spontaneous
  Country: US (occurrence: US)
  Receive Date: 20160210
  Receipt Date: 20160210
  Transmission Date: 20160526
  Serious: No
  Sender: FDA-Public Use
  Company Number: US-ALLERGAN-1511638US

PATIENT
  Sex: Female

DRUGS (4)
  1. BOTOX [Suspect]
     Active Substance: ONABOTULINUMTOXINA
     Indication: HYPERHIDROSIS
     Dosage: 25 UNITS, SINGLE
     Route: 023
     Dates: start: 20150501, end: 20150501
  2. BOTOX [Suspect]
     Active Substance: ONABOTULINUMTOXINA
     Dosage: 25 UNITS, UNK
     Route: 023
     Dates: start: 20150520, end: 20150520
  3. BOTOX [Suspect]
     Active Substance: ONABOTULINUMTOXINA
     Dosage: 25 UNITS, UNK
     Route: 023
     Dates: start: 20150520, end: 20150520
  4. BOTOX [Suspect]
     Active Substance: ONABOTULINUMTOXINA
     Dosage: 25 UNITS, SINGLE
     Route: 023
     Dates: start: 20150501, end: 20150501

REACTIONS (2)
  - Drug ineffective [Unknown]
  - Off label use [Unknown]
